APPROVED DRUG PRODUCT: MACUGEN
Active Ingredient: PEGAPTANIB SODIUM
Strength: EQ 0.3MG ACID/0.09ML
Dosage Form/Route: INJECTABLE;INTRAVITREAL
Application: N021756 | Product #001
Applicant: BAUSCH AND LOMB INC
Approved: Dec 17, 2004 | RLD: Yes | RS: No | Type: DISCN